FAERS Safety Report 10286052 (Version 1)
Quarter: 2014Q3

REPORT INFORMATION
  Report Type: Spontaneous
  Country: US (occurrence: None)
  Receive Date: 20140703
  Receipt Date: 20140703
  Transmission Date: 20150326
  Serious: Yes (Hospitalization, Other)
  Sender: FDA-Public Use
  Company Number: ADR-2014419091

PATIENT
  Age: 80 Year
  Sex: Female
  Weight: 89.36 kg

DRUGS (2)
  1. LISINOPRIL TABLETS, 10MG/ INVAGEN INC. [Suspect]
     Active Substance: LISINOPRIL
     Indication: HYPERTENSION
     Route: 048
  2. LANTUS INJECTION [Concomitant]

REACTIONS (4)
  - Acute respiratory failure [None]
  - Choking [None]
  - Angioedema [None]
  - Renal failure acute [None]

NARRATIVE: CASE EVENT DATE: 20140605
